FAERS Safety Report 9441459 (Version 3)
Quarter: 2013Q3

REPORT INFORMATION
  Report Type: Spontaneous
  Country: US (occurrence: US)
  Receive Date: 20130805
  Receipt Date: 20130830
  Transmission Date: 20140515
  Serious: Yes (Hospitalization, Other)
  Sender: FDA-Public Use
  Company Number: US-PFIZER INC-2013225658

PATIENT
  Age: 26 Year
  Sex: Female

DRUGS (9)
  1. SOLU MEDROL [Suspect]
     Indication: MULTIPLE SCLEROSIS RELAPSE
     Dosage: 500 MG ONCE DAILY X5
     Route: 042
     Dates: end: 20121125
  2. HYDROCHLOROTHIAZIDE [Suspect]
     Indication: BRADYCARDIA
     Dosage: UNK
     Route: 042
     Dates: end: 201211
  3. HYDROCHLOROTHIAZIDE [Suspect]
     Indication: BLOOD PRESSURE INCREASED
  4. REBIF [Suspect]
     Indication: MULTIPLE SCLEROSIS
     Dosage: 44 UG, 3 IN 1 WK
     Route: 058
     Dates: start: 201202
  5. REBIF [Suspect]
     Indication: RELAPSING-REMITTING MULTIPLE SCLEROSIS
     Dosage: 44 UG, 3 IN 1 WK
     Route: 058
     Dates: start: 20121105, end: 20121124
  6. REBIF [Suspect]
     Dosage: FIRST DOSE OF 8.8MG
     Route: 058
     Dates: start: 20121124, end: 20121124
  7. REBIF [Suspect]
     Dosage: 22 UG, 2X/WEEK
     Route: 058
     Dates: start: 201211, end: 20121125
  8. LEXAPRO [Concomitant]
     Dosage: 10 MG, 1X/DAY
     Route: 048
     Dates: end: 20121125
  9. IBUPROFEN [Concomitant]
     Dosage: 400 MG, EVERY 6 HOURS PRN
     Route: 048
     Dates: end: 20121125

REACTIONS (8)
  - Bradycardia [Recovered/Resolved]
  - Fatigue [Recovering/Resolving]
  - Multiple sclerosis relapse [Recovered/Resolved]
  - Hypertension [Recovering/Resolving]
  - Caesarean section [Recovered/Resolved]
  - Cephalo-pelvic disproportion [Unknown]
  - Malaise [Recovering/Resolving]
  - Vision blurred [Recovering/Resolving]
